FAERS Safety Report 6879483-3 (Version None)
Quarter: 2010Q3

REPORT INFORMATION
  Report Type: 
  Country: None (occurrence: None)
  Receive Date: 20100728
  Receipt Date: 20100723
  Transmission Date: 20110219
  Serious: Yes (Death)
  Sender: FDA-Public Use
  Company Number: GXKR2010DE08136

PATIENT
  Age: 63 Year
  Sex: Male
  Weight: 72 kg

DRUGS (11)
  1. FURORESE (NGX) [Suspect]
  2. SPIRONOLACTON (NGX) [Suspect]
  3. SORAFENIB [Suspect]
     Indication: HEPATIC NEOPLASM MALIGNANT
     Dosage: 400 MG, QD
     Dates: start: 20100525
  4. PANTOPRAZOLE [Concomitant]
  5. PROTAPHANE MC [Concomitant]
  6. ACTRAPID HUMAN [Concomitant]
  7. MAGNESIUM VERLA [Concomitant]
  8. SODIUM CHLORIDE [Concomitant]
  9. RAMIPRIL [Concomitant]
  10. DETRUSITOL [Concomitant]
  11. METAMIZOLE [Concomitant]

REACTIONS (1)
  - CEREBRAL HAEMORRHAGE [None]
